FAERS Safety Report 8881263 (Version 1)
Quarter: 2012Q4

REPORT INFORMATION
  Report Type: 
  Country: CA (occurrence: CA)
  Receive Date: 20121031
  Receipt Date: 20121031
  Transmission Date: 20130627
  Serious: Yes (Hospitalization)
  Sender: FDA-Public Use
  Company Number: CA-ELI_LILLY_AND_COMPANY-CA201210006689

PATIENT
  Age: 80 Year
  Sex: Female

DRUGS (15)
  1. FORTEO [Suspect]
     Indication: OSTEOPOROSIS
     Dosage: 20 ug, qd
     Route: 058
     Dates: start: 20121009
  2. ARTHROTEC [Concomitant]
     Dosage: UNK, unknown
     Route: 065
  3. DOCUSATE SODIUM [Concomitant]
     Dosage: UNK, unknown
     Route: 065
  4. APO-HYDRO [Concomitant]
     Dosage: UNK, unknown
     Route: 065
  5. OMEPRAZOLE [Concomitant]
     Dosage: UNK, unknown
     Route: 065
  6. GABAPENTIN [Concomitant]
     Dosage: UNK, unknown
     Route: 065
  7. TYLENOL /00020001/ [Concomitant]
     Dosage: UNK, unknown
     Route: 065
  8. SOLAXIN [Concomitant]
     Dosage: UNK, unknown
     Route: 065
  9. ELAVIL [Concomitant]
     Dosage: UNK, unknown
     Route: 065
  10. VITAMIN B12 [Concomitant]
     Dosage: UNK, unknown
     Route: 065
  11. SENOKOT [Concomitant]
     Dosage: UNK, unknown
     Route: 065
  12. ASPIRIN [Concomitant]
     Dosage: 81 mg, unknown
     Route: 065
  13. VITAMIN D [Concomitant]
     Dosage: UNK, unknown
     Route: 065
  14. FOLIC ACID [Concomitant]
     Dosage: UNK, unknown
     Route: 065
  15. METHOTREXATE [Concomitant]
     Dosage: UNK, unknown
     Route: 065

REACTIONS (2)
  - Diarrhoea [Not Recovered/Not Resolved]
  - Back pain [Not Recovered/Not Resolved]
